FAERS Safety Report 6463912-3 (Version None)
Quarter: 2009Q4

REPORT INFORMATION
  Report Type: 
  Country: None (occurrence: None)
  Receive Date: 20091201
  Receipt Date: 20090929
  Transmission Date: 20100525
  Serious: No
  Sender: FDA-Public Use
  Company Number: US-BAYER-200935749NA

PATIENT
  Age: 30 Year
  Sex: Female
  Weight: 58 kg

DRUGS (3)
  1. MAGNEVIST [Suspect]
     Indication: GALACTORRHOEA
     Dosage: TOTAL DAILY DOSE: 11 ML  UNIT DOSE: 15 ML
     Route: 042
     Dates: start: 20090928, end: 20090928
  2. ADDERALL 10 [Concomitant]
  3. NATURAL HRT (HORMONE REPLACEMENT THERAPY) [Concomitant]

REACTIONS (4)
  - HEADACHE [None]
  - NASAL CONGESTION [None]
  - NAUSEA [None]
  - PRURITUS [None]
